FAERS Safety Report 24944695 (Version 2)
Quarter: 2025Q1

REPORT INFORMATION
  Report Type: Report from Study
  Country: GB (occurrence: GB)
  Receive Date: 20250208
  Receipt Date: 20250214
  Transmission Date: 20250408
  Serious: Yes (Death, Other)
  Sender: UNITED THERAPEUTICS
  Company Number: GB-UNITED THERAPEUTICS-UNT-2025-004534

PATIENT

DRUGS (1)
  1. TREPROSTINIL SODIUM [Suspect]
     Active Substance: TREPROSTINIL SODIUM
     Indication: Product used for unknown indication

REACTIONS (1)
  - Death [Fatal]
